FAERS Safety Report 9171413 (Version 1)
Quarter: 2013Q1

REPORT INFORMATION
  Report Type: Spontaneous
  Country: FR (occurrence: FR)
  Receive Date: 20130319
  Receipt Date: 20130319
  Transmission Date: 20140127
  Serious: Yes (Other)
  Sender: FDA-Public Use
  Company Number: FR-ASTRAZENECA-2013SE13778

PATIENT
  Age: 127 Day
  Sex: Female
  Weight: 6.7 kg

DRUGS (3)
  1. EMLA [Suspect]
     Indication: LOCAL ANAESTHESIA
     Dosage: 1/2 EMLA PATCH ON EACH THIGH AT THE AGE OF 2 MONTHS
     Route: 061
  2. EMLA [Suspect]
     Indication: LOCAL ANAESTHESIA
     Dosage: 1 EMLA PATCH ON ONE THIGH AT THE AGE OF 3 MONTHS
     Route: 061
  3. EMLA [Suspect]
     Indication: LOCAL ANAESTHESIA
     Route: 061
     Dates: start: 20130222, end: 20130222

REACTIONS (4)
  - Wheezing [Recovered/Resolved]
  - Erythema [Recovered/Resolved]
  - Bronchospasm [Recovered/Resolved]
  - Application site erythema [None]
